FAERS Safety Report 8493032-8 (Version None)
Quarter: 2012Q2

REPORT INFORMATION
  Report Type: 
  Country: None (occurrence: None)
  Receive Date: 20120627
  Receipt Date: 20120613
  Transmission Date: 20120825
  Serious: Yes (Hospitalization, Other)
  Sender: FDA-Public Use
  Company Number: 2011016567

PATIENT
  Age: 67 Year
  Sex: Male
  Weight: 94 kg

DRUGS (55)
  1. METOPROLOL TARTRATE [Concomitant]
  2. GABAPENTIN [Concomitant]
  3. ALOXI [Concomitant]
  4. LORAZEPAM [Concomitant]
  5. MAGNESIUM OXIDE [Concomitant]
  6. KAOPECTATE (KAOLIN, PECTIN) [Concomitant]
  7. ACETAMINOPHEN [Concomitant]
  8. GUAIFENESIN [Concomitant]
  9. ALPRAZOLAM [Concomitant]
  10. PERCOCET [Concomitant]
  11. CYCLOBENZAPRINE [Concomitant]
  12. LANSOPRAZOLE [Concomitant]
  13. GEMCITABINE [Concomitant]
  14. PAROXETINE [Concomitant]
  15. HEPARIN [Concomitant]
  16. SENOKOT [Concomitant]
  17. PROCHLORPERAZINE [Concomitant]
  18. DEXAMETHASONE SODIUM POSPHATE [Concomitant]
  19. FUROSEMIDE [Concomitant]
  20. DALTEPARIN SODIUM [Suspect]
     Indication: DEEP VEIN THROMBOSIS
     Dosage: 15000 IU, DAILY, SUBCUTANEOUS
     Route: 058
     Dates: start: 20101230, end: 20110119
  21. LIDODERM [Concomitant]
  22. LORATADINE [Concomitant]
  23. EMEND [Concomitant]
  24. LISINOPRIL [Concomitant]
  25. FENTANYL [Concomitant]
  26. POTASSIUM CHLORIDE [Concomitant]
  27. ANZEMET [Concomitant]
  28. NEUPOGEN [Concomitant]
  29. RED BLOOD CELLS, CONCENTRATED [Concomitant]
  30. MORPHINE [Concomitant]
  31. DIPYRIDAMOLE [Concomitant]
  32. LEVOFLOXACIN [Concomitant]
  33. MONTELUKAST [Concomitant]
  34. DUTASTERIDE [Concomitant]
  35. ONDANSETRON [Concomitant]
  36. SENOKOT [Concomitant]
  37. MONTELUKAST SODIUM [Concomitant]
  38. OMEPRAZOLE [Concomitant]
  39. MYLANTA (ALUMINUM HYDROXIDE GEL, DRIED, MAGNESIUM HYDROXIDE, SIMETICON [Concomitant]
  40. MULTIVITAMINS (ASCORBIC ACID, ERGOCALCIFEROL, FOLIC ACID, NICOTINAMIDE [Concomitant]
  41. VENLAFAXINE [Concomitant]
  42. AMLODIPINE [Concomitant]
  43. NAPROXEN [Concomitant]
  44. FEXOFENADINE [Concomitant]
  45. ACETAMINOPHEN/BUTALBITAL (BUTALBITAL, PARACETAMOL) [Concomitant]
  46. POLYETHYLENE GLYCOL [Concomitant]
  47. CICLOPIROX [Concomitant]
  48. MANNITOL [Concomitant]
  49. TAMSULOSIN HCL [Concomitant]
  50. CARBOPLATIN [Concomitant]
  51. METFORMIN HCL [Concomitant]
  52. PHENAZOPYRIDINE HCL TAB [Concomitant]
  53. ZOFRAN [Concomitant]
  54. ALBUTEROL [Concomitant]
  55. ZYVOX [Concomitant]

REACTIONS (16)
  - RENAL FAILURE ACUTE [None]
  - SEPSIS [None]
  - LYMPHATIC OBSTRUCTION [None]
  - LYMPHADENOPATHY [None]
  - HIATUS HERNIA [None]
  - DEHYDRATION [None]
  - PAIN [None]
  - CELLULITIS [None]
  - THROMBOCYTOPENIA [None]
  - HYPOKALAEMIA [None]
  - HYPOPHOSPHATAEMIA [None]
  - HYPOMAGNESAEMIA [None]
  - HYDRONEPHROSIS [None]
  - ANAEMIA [None]
  - FLANK PAIN [None]
  - PLEURAL EFFUSION [None]
